FAERS Safety Report 11823893 (Version 1)
Quarter: 2015Q4

REPORT INFORMATION
  Report Type: Spontaneous
  Country: GB (occurrence: GB)
  Receive Date: 20151210
  Receipt Date: 20151210
  Transmission Date: 20160305
  Serious: Yes (Hospitalization)
  Sender: FDA-Public Use
  Company Number: GB-JNJFOC-20151207829

PATIENT
  Age: 74 Year
  Sex: Male
  Weight: 121 kg

DRUGS (2)
  1. XARELTO [Suspect]
     Active Substance: RIVAROXABAN
     Indication: CEREBROVASCULAR ACCIDENT PROPHYLAXIS
     Route: 048
     Dates: start: 20151115, end: 20151117
  2. XARELTO [Suspect]
     Active Substance: RIVAROXABAN
     Indication: ATRIAL FIBRILLATION
     Route: 048
     Dates: start: 20151115, end: 20151117

REACTIONS (6)
  - Iron deficiency anaemia [Unknown]
  - Gastric antral vascular ectasia [Unknown]
  - Melaena [Unknown]
  - Upper gastrointestinal haemorrhage [Recovering/Resolving]
  - Condition aggravated [Unknown]
  - Drug dispensing error [Unknown]

NARRATIVE: CASE EVENT DATE: 20151115
